FAERS Safety Report 13942587 (Version 6)
Quarter: 2017Q4

REPORT INFORMATION
  Report Type: Report from Study
  Country: US (occurrence: US)
  Receive Date: 20170907
  Receipt Date: 20171229
  Transmission Date: 20180320
  Serious: Yes (Hospitalization, Other)
  Sender: FDA-Public Use
  Company Number: US-SA-2017SA162129

PATIENT
  Age: 61 Year
  Sex: Female

DRUGS (4)
  1. VENTOLIN HFA [Concomitant]
     Active Substance: ALBUTEROL SULFATE
     Route: 065
     Dates: start: 20160802
  2. PLERIXAFOR [Suspect]
     Active Substance: PLERIXAFOR
     Indication: HAEMATOPOIETIC STEM CELL MOBILISATION
     Dosage: FREQ: CONTINUOUS
     Route: 042
     Dates: start: 20170821
  3. PREMARIN [Concomitant]
     Active Substance: ESTROGENS, CONJUGATED
     Route: 061
     Dates: start: 20160816
  4. PANCRELIPASE. [Concomitant]
     Active Substance: PANCRELIPASE
     Dosage: DOSE:1000 UNIT(S)
     Route: 048
     Dates: start: 20170817

REACTIONS (2)
  - Ventricular arrhythmia [Not Recovered/Not Resolved]
  - Anaemia [Recovered/Resolved]

NARRATIVE: CASE EVENT DATE: 20170821
